FAERS Safety Report 8025379-3 (Version None)
Quarter: 2012Q1

REPORT INFORMATION
  Report Type: 
  Country: None (occurrence: None)
  Receive Date: 20120105
  Receipt Date: 20120104
  Transmission Date: 20120608
  Serious: Yes (Other)
  Sender: FDA-Public Use
  Company Number: DE-PFIZER INC-2012002743

PATIENT

DRUGS (1)
  1. ZIPRASIDONE HYDROCHLORIDE [Suspect]

REACTIONS (1)
  - DRUG DEPENDENCE [None]
